FAERS Safety Report 12787402 (Version 3)
Quarter: 2017Q1

REPORT INFORMATION
  Report Type: Spontaneous
  Country: US (occurrence: US)
  Receive Date: 20160928
  Receipt Date: 20170124
  Transmission Date: 20170428
  Serious: Yes (Death, Hospitalization, Other)
  Sender: FDA-Public Use
  Company Number: US-SA-2016SA178491

PATIENT
  Age: 10 Month
  Sex: Female
  Weight: 9.1 kg

DRUGS (10)
  1. EMLA [Concomitant]
     Active Substance: LIDOCAINE\PRILOCAINE
     Dosage: APPLY EMLA TO MEDIPORT SITE
     Route: 061
     Dates: start: 20121001
  2. NYSTATIN. [Concomitant]
     Active Substance: NYSTATIN
     Route: 061
     Dates: start: 20121021
  3. PREDNISOLONE SODIUM PHOSPHATE. [Concomitant]
     Active Substance: PREDNISOLONE SODIUM PHOSPHATE
     Route: 048
  4. POLYETHYLENE GLYCOL [Concomitant]
     Active Substance: POLYETHYLENE GLYCOLS
     Dosage: EVERY 48 HOURS
  5. LUMIZYME [Suspect]
     Active Substance: ALGLUCOSIDASE ALFA
     Indication: GLYCOGEN STORAGE DISEASE TYPE II
     Route: 041
     Dates: end: 20130327
  6. ALBUTEROL. [Concomitant]
     Active Substance: ALBUTEROL
     Dosage: 3 ML+ 2.5 M, INHALATION
     Dates: start: 20121021
  7. LASIX [Concomitant]
     Active Substance: FUROSEMIDE
     Dosage: GI TUBE
     Dates: start: 2012
  8. LASIX [Concomitant]
     Active Substance: FUROSEMIDE
     Dates: start: 20130131
  9. PRILOSEC [Concomitant]
     Active Substance: OMEPRAZOLE MAGNESIUM
     Dates: start: 20130208
  10. TYLENOL [Concomitant]
     Active Substance: ACETAMINOPHEN
     Dates: start: 201210

REACTIONS (30)
  - C-reactive protein increased [Recovered/Resolved]
  - Vomiting [Recovered/Resolved]
  - Use of accessory respiratory muscles [Recovering/Resolving]
  - Oxygen saturation decreased [Unknown]
  - Death [Fatal]
  - Respiratory symptom [Not Recovered/Not Resolved]
  - Klebsiella infection [Recovered/Resolved]
  - Staphylococcal infection [Unknown]
  - Human rhinovirus test positive [Unknown]
  - Atelectasis [Unknown]
  - Otitis media acute [Unknown]
  - Product use issue [Unknown]
  - Vasodilatation [Recovered/Resolved]
  - Failure to thrive [Unknown]
  - Enterovirus test positive [Unknown]
  - Pneumothorax [Unknown]
  - Diarrhoea [Recovered/Resolved]
  - Nasal flaring [Recovering/Resolving]
  - Respiratory distress [Recovering/Resolving]
  - Tachypnoea [Recovered/Resolved]
  - Pseudomonas test positive [Unknown]
  - Dyspnoea [Recovering/Resolving]
  - Clostridium difficile infection [Recovered/Resolved]
  - Post procedural drainage [Unknown]
  - Skin odour abnormal [Unknown]
  - Rhinorrhoea [Unknown]
  - Adenovirus test positive [Unknown]
  - Pyrexia [Recovered/Resolved]
  - Moraxella test positive [Unknown]
  - Dysphagia [Unknown]

NARRATIVE: CASE EVENT DATE: 201210
